FAERS Safety Report 12056667 (Version 2)
Quarter: 2016Q2

REPORT INFORMATION
  Report Type: Spontaneous
  Country: JP (occurrence: JP)
  Receive Date: 20160210
  Receipt Date: 20160405
  Transmission Date: 20160815
  Serious: Yes (Hospitalization)
  Sender: FDA-Public Use
  Company Number: JP-TAKEDA-2016TJP002026

PATIENT
  Age: 65 Year
  Sex: Male
  Weight: 65.4 kg

DRUGS (6)
  1. BAYCARON [Concomitant]
     Indication: HYPERTENSION
     Dosage: 25 MG, QD
     Route: 048
  2. BAYASPIRIN [Concomitant]
     Active Substance: ASPIRIN
     Dosage: 100 MG, QD
     Route: 048
  3. OVULANZE [Concomitant]
     Active Substance: OMEPRAZOLE
     Indication: HAEMORRHAGE PROPHYLAXIS
     Dosage: 10 MG, QD
     Route: 048
  4. AMLODIPINE                         /00972402/ [Concomitant]
     Active Substance: AMLODIPINE BESYLATE
     Indication: HYPERTENSION
     Dosage: 2.5 MG, QD
     Route: 048
  5. VALSARTAN. [Concomitant]
     Active Substance: VALSARTAN
     Indication: HYPERTENSION
     Dosage: 80 MG, QD
     Route: 048
  6. ACTOS [Suspect]
     Active Substance: PIOGLITAZONE HYDROCHLORIDE
     Indication: DIABETES MELLITUS
     Dosage: 15 MG, QD
     Route: 048
     Dates: end: 20160127

REACTIONS (1)
  - Pleural effusion [Recovered/Resolved]

NARRATIVE: CASE EVENT DATE: 201512
